FAERS Safety Report 14511951 (Version 1)
Quarter: 2018Q1

REPORT INFORMATION
  Report Type: Spontaneous
  Country: US (occurrence: US)
  Receive Date: 20180209
  Receipt Date: 20180209
  Transmission Date: 20180509
  Serious: Yes (Life-Threatening, Hospitalization, Disabling)
  Sender: FDA-Public Use
  Company Number: None

PATIENT
  Age: 49 Year
  Sex: Female
  Weight: 73.48 kg

DRUGS (15)
  1. ZOLPIDEM TARTRATE. [Suspect]
     Active Substance: ZOLPIDEM TARTRATE
     Indication: PAIN
     Dosage: ROUTE - 1 PATCH EVERY 72 HOURS
     Dates: start: 20171003, end: 20171206
  2. AMITIZA [Concomitant]
     Active Substance: LUBIPROSTONE
  3. BETAMETHASONE DIPROPIONATE CREAM [Suspect]
     Active Substance: BETAMETHASONE DIPROPIONATE
  4. AMITRIPTYLINE [Suspect]
     Active Substance: AMITRIPTYLINE
  5. LINZESS [Concomitant]
     Active Substance: LINACLOTIDE
  6. LORAZEPAM. [Suspect]
     Active Substance: LORAZEPAM
  7. CLOTRIMAZOLE. [Suspect]
     Active Substance: CLOTRIMAZOLE
  8. HYDROCHLOROTHIAZIDE. [Concomitant]
     Active Substance: HYDROCHLOROTHIAZIDE
  9. NORITRIPTYLINE [Suspect]
     Active Substance: NORTRIPTYLINE
  10. SUPREP BOWEL PREP [Concomitant]
     Active Substance: MAGNESIUM SULFATE\POTASSIUM SULFATE\SODIUM SULFATE
  11. MAGNESIUM CITRATE. [Concomitant]
     Active Substance: MAGNESIUM CITRATE
  12. PROPELENE GLYCOL [Concomitant]
  13. FENTANYL 25MCG [Suspect]
     Active Substance: FENTANYL
  14. AMMONIUM LACTATE CREAM [Suspect]
     Active Substance: AMMONIUM LACTATE
  15. LACTULOSE. [Concomitant]
     Active Substance: LACTULOSE

REACTIONS (3)
  - Product formulation issue [None]
  - Manufacturing issue [None]
  - Product colour issue [None]

NARRATIVE: CASE EVENT DATE: 20171103
